FAERS Safety Report 10315021 (Version 1)
Quarter: 2014Q3

REPORT INFORMATION
  Report Type: Report from Study
  Country: AR (occurrence: AR)
  Receive Date: 20140718
  Receipt Date: 20140718
  Transmission Date: 20150326
  Serious: Yes (Other)
  Sender: FDA-Public Use
  Company Number: PHHY2014AR088165

PATIENT
  Sex: Female

DRUGS (3)
  1. DIOVAN D [Suspect]
     Active Substance: HYDROCHLOROTHIAZIDE\VALSARTAN
     Indication: HYPERTENSION
     Dosage: 1 DF (160MG), DAILY
     Route: 048
     Dates: start: 2011
  2. EXFORGE [Suspect]
     Active Substance: AMLODIPINE BESYLATE\VALSARTAN
     Indication: HYPERTENSION
     Dosage: 1 DF (160/5/12.5MG), DAILY
     Route: 048
     Dates: start: 2011
  3. RASILEZ D [Suspect]
     Active Substance: ALISKIREN\HYDROCHLOROTHIAZIDE
     Indication: HYPERTENSION
     Dosage: 1 DF (150/12.5MG), DAILY
     Route: 048
     Dates: start: 2011

REACTIONS (1)
  - Arthropathy [Not Recovered/Not Resolved]

NARRATIVE: CASE EVENT DATE: 2013
